FAERS Safety Report 18213692 (Version 1)
Quarter: 2020Q3

REPORT INFORMATION
  Report Type: Spontaneous
  Country: US (occurrence: US)
  Receive Date: 20200831
  Receipt Date: 20200831
  Transmission Date: 20201103
  Serious: Yes (Disabling)
  Sender: FDA-Public Use
  Company Number: None

PATIENT
  Age: 61 Year
  Sex: Female
  Weight: 50.4 kg

DRUGS (6)
  1. VITAMIN D3 [Concomitant]
     Active Substance: CHOLECALCIFEROL
  2. VITAMIN B6 [Concomitant]
     Active Substance: PYRIDOXINE HYDROCHLORIDE
  3. VITAMIN B12 [Concomitant]
     Active Substance: CYANOCOBALAMIN
  4. VITAMIN C [Concomitant]
     Active Substance: ASCORBIC ACID
  5. ASMANEX [Suspect]
     Active Substance: MOMETASONE FUROATE
     Indication: COUGH
     Dosage: ?          OTHER STRENGTH:MCG;QUANTITY:1 INHALATION(S);?
     Route: 055
     Dates: start: 20200721, end: 20200831
  6. FLUTICASONE NASAL SPRAY [Concomitant]
     Active Substance: FLUTICASONE

REACTIONS (3)
  - Sensation of foreign body [None]
  - Cataract [None]
  - Cough [None]

NARRATIVE: CASE EVENT DATE: 20200831
